FAERS Safety Report 9091174 (Version 1)
Quarter: 2013Q1

REPORT INFORMATION
  Report Type: Spontaneous
  Country: US (occurrence: US)
  Receive Date: 20130131
  Receipt Date: 20130131
  Transmission Date: 20140127
  Serious: Yes (Other)
  Sender: FDA-Public Use
  Company Number: US-ELI_LILLY_AND_COMPANY-US201211003548

PATIENT
  Age: 50 Year
  Sex: Male
  Weight: 81.63 kg

DRUGS (5)
  1. CYMBALTA [Suspect]
     Indication: MAJOR DEPRESSION
     Dosage: 60 MG, UNKNOWN
     Route: 048
     Dates: start: 20111208
  2. CYMBALTA [Suspect]
     Dosage: 90 MG, QD
     Route: 048
  3. ABILIFY [Concomitant]
     Indication: MAJOR DEPRESSION
     Dosage: 2 MG, UNK
  4. ABILIFY [Concomitant]
     Dosage: 2.5 MG, EACH MORNING
  5. IMITREX [Concomitant]
     Indication: MIGRAINE

REACTIONS (8)
  - Serotonin syndrome [Recovered/Resolved]
  - Heart rate increased [Recovered/Resolved]
  - Sedation [Recovered/Resolved]
  - Nausea [Recovered/Resolved]
  - Altered state of consciousness [Recovered/Resolved]
  - Confusional state [Recovered/Resolved]
  - Panic attack [Recovered/Resolved]
  - Migraine [Unknown]
